FAERS Safety Report 19249313 (Version 3)
Quarter: 2022Q2

REPORT INFORMATION
  Report Type: Spontaneous
  Country: US (occurrence: US)
  Receive Date: 20210513
  Receipt Date: 20220526
  Transmission Date: 20220721
  Serious: Yes (Other)
  Sender: FDA-Public Use
  Company Number: US-NOVEN PHARMACEUTICALS, INC.-2021-NOV-US003405

PATIENT
  Sex: Male

DRUGS (3)
  1. DAYTRANA [Suspect]
     Active Substance: METHYLPHENIDATE
     Indication: Attention deficit hyperactivity disorder
     Dosage: 15MG/ 9 HOURS, UNKNOWN
     Route: 062
     Dates: start: 202103
  2. DAYTRANA [Suspect]
     Active Substance: METHYLPHENIDATE
     Indication: Oppositional defiant disorder
     Dosage: 10MG/ 9 HOURS, UNKNOWN
     Route: 062
     Dates: start: 202102, end: 202103
  3. MELATONIN [Concomitant]
     Active Substance: MELATONIN
     Indication: Sleep disorder
     Dosage: UNKNOWN, PRN
     Route: 048

REACTIONS (6)
  - Device difficult to use [Not Recovered/Not Resolved]
  - Device breakage [Not Recovered/Not Resolved]
  - Insomnia [Unknown]
  - Product administration error [Not Recovered/Not Resolved]
  - Incorrect product administration duration [Recovered/Resolved]
  - Off label use [Not Recovered/Not Resolved]

NARRATIVE: CASE EVENT DATE: 20210101
